FAERS Safety Report 21063553 (Version 1)
Quarter: 2022Q3

REPORT INFORMATION
  Report Type: Spontaneous
  Country: US (occurrence: None)
  Receive Date: 20220708
  Receipt Date: 20220708
  Transmission Date: 20221027
  Serious: Yes (Other)
  Sender: FDA-Public Use
  Company Number: None

PATIENT
  Age: 62 Year
  Sex: Female
  Weight: 83 kg

DRUGS (22)
  1. TECARTUS [Suspect]
     Active Substance: BREXUCABTAGENE AUTOLEUCEL
     Indication: Mantle cell lymphoma
     Dosage: OTHER FREQUENCY : ONCE;?
     Route: 042
  2. REMDESIVIR [Concomitant]
     Active Substance: REMDESIVIR
     Dates: start: 20220503, end: 20220507
  3. Acyvlovir [Concomitant]
     Dates: start: 20220426, end: 20220502
  4. ALBUTEROL [Concomitant]
     Active Substance: ALBUTEROL
     Dates: start: 20220426, end: 20220505
  5. ALLOPURINOL [Concomitant]
     Active Substance: ALLOPURINOL
     Dates: start: 20220427, end: 20220509
  6. AMIKACIN [Concomitant]
     Active Substance: AMIKACIN
     Dates: start: 20220502, end: 20220524
  7. Arformoterol Tartate [Concomitant]
     Dates: start: 20220517, end: 20220523
  8. AZITHROMYCIN [Concomitant]
     Active Substance: AZITHROMYCIN
     Dates: start: 20220502, end: 20220524
  9. BUDESONIDE [Concomitant]
     Active Substance: BUDESONIDE
     Dates: start: 20220517, end: 20220523
  10. CEFEPIME [Concomitant]
     Active Substance: CEFEPIME HYDROCHLORIDE
     Dates: start: 20220427, end: 20220502
  11. CHLORHEXIDINE GLUCONATE [Concomitant]
     Active Substance: CHLORHEXIDINE GLUCONATE
     Dates: start: 20220426, end: 20220511
  12. DEXAMETHASONE [Concomitant]
     Active Substance: DEXAMETHASONE
     Dates: start: 20220503, end: 20220503
  13. VANCOMYCIN [Concomitant]
     Active Substance: VANCOMYCIN
     Dates: start: 20220426, end: 20220502
  14. ENOXAPARIN SODIUM [Concomitant]
     Active Substance: ENOXAPARIN SODIUM
     Dates: start: 20220504, end: 20220511
  15. FILGRASTIM-AAFI [Concomitant]
     Active Substance: FILGRASTIM-AAFI
     Dates: start: 20220517, end: 20220517
  16. FLUCONAZOLE [Concomitant]
     Active Substance: FLUCONAZOLE
     Dates: start: 20220504, end: 20220519
  17. FUROSEMIDE [Concomitant]
     Active Substance: FUROSEMIDE
     Dates: start: 20220505, end: 20220507
  18. GABAPENTIN [Concomitant]
     Active Substance: GABAPENTIN
     Dates: start: 20220426, end: 20220430
  19. CILASTATIN SODIUM\IMIPENEM [Concomitant]
     Active Substance: CILASTATIN SODIUM\IMIPENEM
     Dates: start: 20220502, end: 20220518
  20. LEVETIRACETAM [Concomitant]
     Active Substance: LEVETIRACETAM
     Dates: start: 20220503, end: 20220524
  21. MICAFUNGIN SODIUM [Concomitant]
     Active Substance: MICAFUNGIN SODIUM
     Dates: start: 20220428, end: 20220524
  22. Potasium Chloride [Concomitant]
     Dates: start: 20220427, end: 20220518

REACTIONS (2)
  - COVID-19 [None]
  - Dyspnoea [None]

NARRATIVE: CASE EVENT DATE: 20220101
